FAERS Safety Report 25922857 (Version 1)
Quarter: 2025Q4

REPORT INFORMATION
  Report Type: Spontaneous
  Country: US (occurrence: US)
  Receive Date: 20251015
  Receipt Date: 20251015
  Transmission Date: 20260118
  Serious: No
  Sender: ELI LILLY AND COMPANY
  Company Number: US-ELI_LILLY_AND_COMPANY-US202510004191

PATIENT
  Age: 30 Year
  Sex: Female

DRUGS (2)
  1. ZEPBOUND [Suspect]
     Active Substance: TIRZEPATIDE
     Indication: Glucose tolerance impaired
     Dosage: 12.5 MG, UNKNOWN
     Route: 065
     Dates: start: 20250903
  2. ZEPBOUND [Suspect]
     Active Substance: TIRZEPATIDE
     Indication: Hypertension

REACTIONS (4)
  - Off label use [Unknown]
  - Drug ineffective [Unknown]
  - Injection site pruritus [Not Recovered/Not Resolved]
  - Injection site irritation [Not Recovered/Not Resolved]

NARRATIVE: CASE EVENT DATE: 20250905
